FAERS Safety Report 13638279 (Version 3)
Quarter: 2017Q3

REPORT INFORMATION
  Report Type: Spontaneous
  Country: US (occurrence: US)
  Receive Date: 20170609
  Receipt Date: 20170810
  Transmission Date: 20171127
  Serious: Yes (Other)
  Sender: FDA-Public Use
  Company Number: US-PFIZER INC-2017250496

PATIENT
  Age: 54 Year
  Sex: Female

DRUGS (3)
  1. SAVELLA [Suspect]
     Active Substance: MILNACIPRAN HYDROCHLORIDE
     Dosage: 1 DF, 2X/DAY
     Dates: start: 2011
  2. LYRICA [Suspect]
     Active Substance: PREGABALIN
     Dosage: UNK
  3. SAVELLA [Suspect]
     Active Substance: MILNACIPRAN HYDROCHLORIDE
     Dosage: 1 PER DAY
     Dates: start: 2011

REACTIONS (6)
  - Suicidal ideation [Unknown]
  - Skin lesion [Recovered/Resolved]
  - Urticaria [Unknown]
  - Myocardial infarction [Unknown]
  - Arrhythmia [Unknown]
  - Rash [Unknown]

NARRATIVE: CASE EVENT DATE: 2011
